FAERS Safety Report 6204228-X (Version None)
Quarter: 2009Q2

REPORT INFORMATION
  Report Type: 
  Country: None (occurrence: None)
  Receive Date: 20090518
  Receipt Date: 20090209
  Transmission Date: 20091009
  Serious: No
  Sender: FDA-Public Use
  Company Number: WAES 0902USA01495

PATIENT
  Age: 73 Year
  Sex: Female

DRUGS (15)
  1. JANUVIA [Suspect]
     Indication: DIABETES MELLITUS
     Dosage: 100 MG/DAILY/PO
     Route: 048
     Dates: start: 20090202
  2. ARANESP [Concomitant]
  3. LOVAZA [Concomitant]
  4. PLAVIX [Concomitant]
  5. TRAMADOL HCL [Concomitant]
  6. XENICAL [Concomitant]
  7. FUROSEMIDE [Concomitant]
  8. GLIPIZIDE [Concomitant]
  9. ISOSORBIDE [Concomitant]
  10. LACTULOSE [Concomitant]
  11. LISINOPRIL [Concomitant]
  12. METOPROLOL SUCCINATE [Concomitant]
  13. NIACIN [Concomitant]
  14. POTASSIUM CHLORIDE [Concomitant]
  15. RANITIDINE [Concomitant]

REACTIONS (1)
  - VERTIGO [None]
